FAERS Safety Report 9496083 (Version 3)
Quarter: 2013Q4

REPORT INFORMATION
  Report Type: Spontaneous
  Country: US (occurrence: US)
  Receive Date: 20130904
  Receipt Date: 20131204
  Transmission Date: 20140711
  Serious: Yes (Hospitalization, Other)
  Sender: FDA-Public Use
  Company Number: US-AMGEN-USASP2013061100

PATIENT
  Age: 48 Year
  Sex: Female
  Weight: 61.32 kg

DRUGS (3)
  1. PROLIA [Suspect]
     Indication: PRODUCT USED FOR UNKNOWN INDICATION
     Dosage: 60 MG, Q6MO
     Route: 058
     Dates: start: 20130109, end: 20130117
  2. ANASTROZOLE [Concomitant]
     Indication: METASTASIS
     Dosage: 1 MG, QD
     Route: 048
     Dates: start: 20111219, end: 20130212
  3. EXEMESTANE [Concomitant]
     Indication: METASTASIS
     Dosage: 25 MG, QD
     Route: 048
     Dates: start: 20130318

REACTIONS (9)
  - Hypocalcaemia [Not Recovered/Not Resolved]
  - Diarrhoea [Unknown]
  - Tachycardia [Unknown]
  - Hypotension [Unknown]
  - Paraesthesia [Unknown]
  - Hypoaesthesia [Unknown]
  - Dyspnoea [Unknown]
  - Abdominal mass [Unknown]
  - Breast cancer metastatic [Unknown]
